FAERS Safety Report 25140344 (Version 4)
Quarter: 2025Q2

REPORT INFORMATION
  Report Type: Spontaneous
  Country: BE (occurrence: BE)
  Receive Date: 20250331
  Receipt Date: 20250417
  Transmission Date: 20250717
  Serious: Yes (Hospitalization, Other)
  Sender: AUROBINDO
  Company Number: BE-EUROCEPT-EC20250046

PATIENT
  Age: 53 Year
  Sex: Male

DRUGS (23)
  1. ESOMEPRAZOLE MAGNESIUM [Suspect]
     Active Substance: ESOMEPRAZOLE MAGNESIUM
     Indication: Product used for unknown indication
     Dosage: 20 MILLIGRAM, ONCE A DAY
     Route: 065
  2. LOPERAMIDE [Suspect]
     Active Substance: LOPERAMIDE
     Indication: Product used for unknown indication
     Dosage: 2 MILLIGRAM, 3 TIMES A DAY
     Route: 065
  3. LORAZEPAM [Suspect]
     Active Substance: LORAZEPAM
     Indication: Agitation
     Dosage: 1 MILLIGRAM, 3 TIMES A DAY
     Route: 065
  4. IBUPROFEN [Suspect]
     Active Substance: IBUPROFEN
     Indication: Product used for unknown indication
     Dosage: 600 MILLIGRAM, ONCE A DAY
     Route: 065
  5. ACETAMINOPHEN [Suspect]
     Active Substance: ACETAMINOPHEN
     Indication: Product used for unknown indication
     Dosage: 1 GRAM, 3 TIMES A DAY
     Route: 065
  6. QUETIAPINE [Suspect]
     Active Substance: QUETIAPINE
     Indication: Sleep disorder
     Dosage: 200 MILLIGRAM, ONCE A DAY
     Route: 065
  7. QUETIAPINE [Suspect]
     Active Substance: QUETIAPINE
     Dosage: 100 MILLIGRAM, ONCE A DAY
     Route: 065
  8. QUETIAPINE [Suspect]
     Active Substance: QUETIAPINE
     Dosage: 200 MILLIGRAM, ONCE A DAY
     Route: 065
  9. QUETIAPINE [Suspect]
     Active Substance: QUETIAPINE
     Dosage: 400 MILLIGRAM, ONCE A DAY
     Route: 065
  10. QUETIAPINE [Suspect]
     Active Substance: QUETIAPINE
     Dosage: 200 MILLIGRAM, ONCE A DAY
     Route: 065
  11. CLONAZEPAM [Suspect]
     Active Substance: CLONAZEPAM
     Indication: Product used for unknown indication
     Route: 065
  12. CLONAZEPAM [Suspect]
     Active Substance: CLONAZEPAM
     Route: 065
  13. CLOZAPINE [Suspect]
     Active Substance: CLOZAPINE
     Indication: Psychotic disorder
     Dosage: 25 MILLIGRAM, ONCE A DAY
     Route: 065
  14. CLOMIPRAMINE [Suspect]
     Active Substance: CLOMIPRAMINE
     Indication: Obsessive-compulsive disorder
     Dosage: 75 MILLIGRAM, ONCE A DAY
     Route: 065
  15. FLUTICASONE FUROATE\VILANTEROL TRIFENATATE [Suspect]
     Active Substance: FLUTICASONE FUROATE\VILANTEROL TRIFENATATE
     Indication: Product used for unknown indication
  16. LIDOCAINE [Suspect]
     Active Substance: LIDOCAINE
     Indication: Pruritus
     Dosage: 700 MILLIGRAM, ONCE A DAY
     Route: 062
  17. NALTREXONE [Suspect]
     Active Substance: NALTREXONE
     Indication: Product used for unknown indication
     Dosage: 50 MILLIGRAM, ONCE A DAY
     Route: 065
  18. TRAMADOL [Suspect]
     Active Substance: TRAMADOL
     Indication: Pain
     Dosage: 50 MILLIGRAM, FOUR TIMES/DAY
     Route: 065
  19. VITAMIN B [Suspect]
     Active Substance: VITAMIN B
     Indication: Product used for unknown indication
     Route: 065
  20. ACETAMINOPHEN [Suspect]
     Active Substance: ACETAMINOPHEN
     Indication: Product used for unknown indication
     Route: 065
  21. IRON\VITAMINS NOS [Suspect]
     Active Substance: IRON\VITAMINS
     Indication: Product used for unknown indication
     Route: 065
  22. PERINDOPRIL [Concomitant]
     Active Substance: PERINDOPRIL
     Indication: Hypertension
     Dosage: 5 MILLIGRAM, ONCE A DAY
     Route: 065
  23. TAMSULOSIN [Concomitant]
     Active Substance: TAMSULOSIN
     Indication: Product used for unknown indication
     Dosage: 0.4 MILLIGRAM, ONCE A DAY
     Route: 065

REACTIONS (9)
  - Suicidal ideation [Unknown]
  - Intellectual disability [Unknown]
  - Poisoning [Unknown]
  - Inappropriate antidiuretic hormone secretion [Recovering/Resolving]
  - Loss of personal independence in daily activities [Unknown]
  - Obsessive-compulsive disorder [Unknown]
  - Restlessness [Unknown]
  - Iron deficiency anaemia [Unknown]
  - Off label use [Not Recovered/Not Resolved]
